FAERS Safety Report 4335441-4 (Version None)
Quarter: 2004Q2

REPORT INFORMATION
  Report Type: 
  Country: None (occurrence: None)
  Receive Date: 20040408
  Receipt Date: 20040408
  Transmission Date: 20050107
  Serious: Yes (Disabling)
  Sender: FDA-Public Use
  Company Number: None

PATIENT
  Age: 49 Year
  Sex: Female
  Weight: 58.9676 kg

DRUGS (5)
  1. ZICAM COLD REMEDY HOMEOPATHIC GEL TECH [Suspect]
     Indication: NASAL CONGESTION
     Dosage: 2X/DAY UP NOSE ENDOSINUSIAL
     Route: 006
     Dates: start: 20000101, end: 20040101
  2. ZICAM COLD REMEDY HOMEOPATHIC GEL TECH [Suspect]
     Indication: NASOPHARYNGITIS
     Dosage: 2X/DAY UP NOSE ENDOSINUSIAL
     Route: 006
     Dates: start: 20000101, end: 20040101
  3. LEVOXYL [Concomitant]
  4. ESTROGEN PATCH [Concomitant]
  5. PROGESTERONE [Concomitant]

REACTIONS (2)
  - ANOSMIA [None]
  - RHINITIS [None]
